FAERS Safety Report 21553167 (Version 2)
Quarter: 2022Q4

REPORT INFORMATION
  Report Type: Report from Study
  Country: US (occurrence: US)
  Receive Date: 20221104
  Receipt Date: 20221226
  Transmission Date: 20230112
  Serious: Yes (Death, Other)
  Sender: FDA-Public Use
  Company Number: US-BAUSCH-BL-2022-024782

PATIENT
  Age: 74 Year
  Sex: Female

DRUGS (1)
  1. XIFAXAN [Suspect]
     Active Substance: RIFAXIMIN
     Indication: Hepatic encephalopathy
     Dosage: USING FOR YEARS
     Route: 065

REACTIONS (3)
  - Death [Fatal]
  - Appendix disorder [Unknown]
  - Surgical failure [Unknown]

NARRATIVE: CASE EVENT DATE: 20220518
